FAERS Safety Report 15757370 (Version 1)
Quarter: 2018Q4

REPORT INFORMATION
  Report Type: Spontaneous
  Country: IT (occurrence: IT)
  Receive Date: 20181224
  Receipt Date: 20181224
  Transmission Date: 20190205
  Serious: Yes (Hospitalization)
  Sender: FDA-Public Use
  Company Number: IT-TEVA-2018-IT-990403

PATIENT
  Age: 61 Year

DRUGS (8)
  1. CARDIRENE [Concomitant]
     Active Substance: ASPIRIN DL-LYSINE
  2. NICETILE [Concomitant]
     Active Substance: ACETYLCARNITINE HYDROCHLORIDE
  3. METHOTREXATE. [Suspect]
     Active Substance: METHOTREXATE
     Indication: RHEUMATOID ARTHRITIS
     Route: 030
     Dates: start: 20050101, end: 20180921
  4. PERIDON [Concomitant]
     Active Substance: DOMPERIDONE
  5. TAVOR [Concomitant]
  6. DIBASE [Concomitant]
     Active Substance: CHOLECALCIFEROL
  7. ALENDRONATE SODIUM. [Concomitant]
     Active Substance: ALENDRONATE SODIUM
  8. FOLINA [Concomitant]
     Active Substance: FOLIC ACID

REACTIONS (1)
  - Bronchitis [Recovering/Resolving]

NARRATIVE: CASE EVENT DATE: 20180803
